FAERS Safety Report 22186501 (Version 1)
Quarter: 2023Q2

REPORT INFORMATION
  Report Type: Spontaneous
  Country: US (occurrence: US)
  Receive Date: 20230407
  Receipt Date: 20230407
  Transmission Date: 20230722
  Serious: Yes (Life-Threatening, Disabling, Other)
  Sender: FDA-Public Use
  Company Number: US-BRACCO-2023US01554

PATIENT
  Age: 59 Year
  Sex: Female

DRUGS (10)
  1. LUMASON [Suspect]
     Active Substance: SULFUR HEXAFLUORIDE
     Indication: Echocardiogram
     Dosage: 1 ML, SINGLE
     Route: 042
     Dates: start: 20230327, end: 20230327
  2. LUMASON [Suspect]
     Active Substance: SULFUR HEXAFLUORIDE
     Indication: Echocardiogram
     Dosage: 1 ML, SINGLE
     Route: 042
     Dates: start: 20230327, end: 20230327
  3. LUMASON [Suspect]
     Active Substance: SULFUR HEXAFLUORIDE
     Indication: Echocardiogram
     Dosage: 1 ML, SINGLE
     Route: 042
     Dates: start: 20230327, end: 20230327
  4. ATORVASTATIN [Concomitant]
     Active Substance: ATORVASTATIN
     Dosage: 80 MG
  5. DIGOXIN [Concomitant]
     Active Substance: DIGOXIN
  6. AMIODARONE [Concomitant]
     Active Substance: AMIODARONE
     Dosage: 400 MG, BID
  7. LOPRESSOR [Concomitant]
     Active Substance: METOPROLOL TARTRATE
  8. FUROSEMIDE [Concomitant]
     Active Substance: FUROSEMIDE
     Indication: Pulmonary oedema
     Dosage: 40 MG
     Route: 042
  9. APIXABAN [Concomitant]
     Active Substance: APIXABAN
     Indication: Atrial fibrillation
  10. OXYGEN [Concomitant]
     Active Substance: OXYGEN
     Dosage: 4 L VIA NASAL CANULA

REACTIONS (3)
  - Pulseless electrical activity [Recovered/Resolved]
  - Cardio-respiratory arrest [Recovered/Resolved]
  - Loss of consciousness [Not Recovered/Not Resolved]

NARRATIVE: CASE EVENT DATE: 20230327
